FAERS Safety Report 7867857-3 (Version None)
Quarter: 2011Q4

REPORT INFORMATION
  Report Type: 
  Country: None (occurrence: None)
  Receive Date: 20111025
  Receipt Date: 20111010
  Transmission Date: 20120403
  Serious: Yes (Hospitalization)
  Sender: FDA-Public Use
  Company Number: CIP11002634

PATIENT
  Age: 27 Year
  Sex: Female

DRUGS (1)
  1. ASACOL [Suspect]
     Indication: COLITIS ULCERATIVE

REACTIONS (4)
  - DRUG HYPERSENSITIVITY [None]
  - PYREXIA [None]
  - BACK PAIN [None]
  - PLEURISY [None]
